FAERS Safety Report 5961340-8 (Version None)
Quarter: 2008Q4

REPORT INFORMATION
  Report Type: 
  Country: None (occurrence: None)
  Receive Date: 20081119
  Receipt Date: 20080123
  Transmission Date: 20090506
  Serious: No
  Sender: FDA-Public Use
  Company Number: 2008S1001200

PATIENT
  Age: 37 Year
  Sex: Female

DRUGS (2)
  1. CYCLOPHOSPHAMIDE [Suspect]
     Dosage: 1800 MG/M2;DAILY
  2. ETOPOSIDE [Suspect]
     Dosage: 900 MG/M2;DAILY

REACTIONS (1)
  - ALOPECIA [None]
